FAERS Safety Report 5068004-6 (Version None)
Quarter: 2006Q3

REPORT INFORMATION
  Report Type: 
  Country: None (occurrence: None)
  Receive Date: 20060731
  Receipt Date: 20060717
  Transmission Date: 20061208
  Serious: Yes (Hospitalization, Disabling)
  Sender: FDA-Public Use
  Company Number: 2006091154

PATIENT
  Age: 66 Year
  Sex: Female

DRUGS (1)
  1. BEXTRA [Suspect]
     Indication: DRUG USE FOR UNKNOWN INDICATION
     Dosage: 40 MG (20 MG)

REACTIONS (3)
  - CEREBROVASCULAR ACCIDENT [None]
  - CHEST PAIN [None]
  - RENAL DISORDER [None]
